FAERS Safety Report 11073553 (Version 1)
Quarter: 2015Q2

REPORT INFORMATION
  Report Type: Spontaneous
  Country: JP (occurrence: JP)
  Receive Date: 20150428
  Receipt Date: 20150428
  Transmission Date: 20150821
  Serious: Yes (Other)
  Sender: FDA-Public Use
  Company Number: JP-CELGENE-087-21660-14080971

PATIENT

DRUGS (10)
  1. ABRAXANE [Suspect]
     Active Substance: PACLITAXEL
     Dosage: 65 OR 80 MG/M2
     Route: 041
  2. TEGAFUR [Suspect]
     Active Substance: TEGAFUR
     Route: 048
  3. GIMERACIL [Suspect]
     Active Substance: GIMERACIL
     Route: 048
  4. TEGAFUR [Suspect]
     Active Substance: TEGAFUR
     Indication: BREAST CANCER METASTATIC
     Route: 048
  5. GIMERACIL [Suspect]
     Active Substance: GIMERACIL
     Indication: BREAST CANCER METASTATIC
     Route: 048
  6. OTERACIL POTASSIUM [Suspect]
     Active Substance: OTERACIL POTASSIUM
     Indication: BREAST CANCER METASTATIC
     Route: 048
  7. ABRAXANE [Suspect]
     Active Substance: PACLITAXEL
     Indication: BREAST CANCER METASTATIC
     Route: 041
  8. ABRAXANE [Suspect]
     Active Substance: PACLITAXEL
     Route: 041
  9. ABRAXANE [Suspect]
     Active Substance: PACLITAXEL
     Dosage: 65 OR 80 MG/M2
     Route: 041
  10. OTERACIL POTASSIUM [Suspect]
     Active Substance: OTERACIL POTASSIUM
     Route: 048

REACTIONS (26)
  - Diarrhoea [Unknown]
  - Breast cancer metastatic [Unknown]
  - Peripheral sensory neuropathy [Unknown]
  - Oedema peripheral [Unknown]
  - Keratitis [Unknown]
  - Stomatitis [Unknown]
  - Skin hyperpigmentation [Unknown]
  - Myalgia [Unknown]
  - Psoriasis [Unknown]
  - Cheilitis [Unknown]
  - Neutropenia [Not Recovered/Not Resolved]
  - Alanine aminotransferase increased [Unknown]
  - Aspartate aminotransferase increased [Unknown]
  - Lymphopenia [Unknown]
  - Abdominal pain [Unknown]
  - Constipation [Unknown]
  - Thrombocytopenia [Unknown]
  - Decreased appetite [Unknown]
  - Fatigue [Unknown]
  - Dry skin [Unknown]
  - Lacrimation increased [Unknown]
  - Vomiting [Unknown]
  - Anaemia [Unknown]
  - Leukopenia [Unknown]
  - Alopecia [Unknown]
  - Dysgeusia [Unknown]
